FAERS Safety Report 24667852 (Version 2)
Quarter: 2024Q4

REPORT INFORMATION
  Report Type: Spontaneous
  Country: IT (occurrence: IT)
  Receive Date: 20241127
  Receipt Date: 20241224
  Transmission Date: 20250115
  Serious: Yes (Hospitalization)
  Sender: NOVARTIS
  Company Number: IT-002147023-NVSC2024IT225030

PATIENT
  Age: 66 Year
  Sex: Male

DRUGS (2)
  1. INCLISIRAN [Suspect]
     Active Substance: INCLISIRAN
     Indication: Cardiac arrest
     Dosage: UNK, ONCE/SINGLE
     Route: 065
     Dates: start: 202306
  2. EZETIMIBE [Concomitant]
     Active Substance: EZETIMIBE
     Indication: Product used for unknown indication
     Dosage: UNK
     Route: 065

REACTIONS (2)
  - Angina unstable [Recovered/Resolved]
  - Off label use [Unknown]

NARRATIVE: CASE EVENT DATE: 20240127
